FAERS Safety Report 11109636 (Version 4)
Quarter: 2015Q4

REPORT INFORMATION
  Report Type: Spontaneous
  Country: US (occurrence: US)
  Receive Date: 20150513
  Receipt Date: 20151113
  Transmission Date: 20160304
  Serious: Yes (Other)
  Sender: FDA-Public Use
  Company Number: US-HORIZON-ACT-0074-2015

PATIENT
  Age: 50 Year
  Sex: Male

DRUGS (3)
  1. ACTIMMUNE [Suspect]
     Active Substance: INTERFERON GAMMA-1B
     Indication: DERMATITIS ATOPIC
     Dates: start: 20121119, end: 201505
  2. VANICREAM [Concomitant]
     Active Substance: TITANIUM DIOXIDE\ZINC OXIDE
     Route: 061
  3. HYDROCORTISONE 1% [Concomitant]
     Active Substance: HYDROCORTISONE
     Route: 061

REACTIONS (6)
  - Immune system disorder [Not Recovered/Not Resolved]
  - Arthralgia [Recovering/Resolving]
  - Tendon rupture [Unknown]
  - Joint stiffness [Recovering/Resolving]
  - Off label use [Unknown]
  - Exercise tolerance decreased [None]

NARRATIVE: CASE EVENT DATE: 201505
